FAERS Safety Report 6263613-0 (Version None)
Quarter: 2009Q3

REPORT INFORMATION
  Report Type: 
  Country: None (occurrence: None)
  Receive Date: 20090710
  Receipt Date: 20090619
  Transmission Date: 20100115
  Serious: No
  Sender: FDA-Public Use
  Company Number: A0788675A

PATIENT
  Age: 55 Year
  Sex: Female

DRUGS (2)
  1. TYKERB [Suspect]
     Indication: DRUG USE FOR UNKNOWN INDICATION
     Dosage: 5TAB PER DAY
     Route: 065
     Dates: start: 20090523
  2. XELODA [Concomitant]

REACTIONS (4)
  - ARTHRALGIA [None]
  - BLOOD URINE PRESENT [None]
  - CONSTIPATION [None]
  - HYPOAESTHESIA [None]
